FAERS Safety Report 9331541 (Version 2)
Quarter: 2013Q2

REPORT INFORMATION
  Report Type: Spontaneous
  Country: JP (occurrence: None)
  Receive Date: 20130531
  Receipt Date: 20130610
  Transmission Date: 20140414
  Serious: No
  Sender: FDA-Public Use
  Company Number: TCI2013A02938

PATIENT
  Sex: Male

DRUGS (4)
  1. TAKEPRON OD [Suspect]
     Indication: GASTROOESOPHAGEAL REFLUX DISEASE
     Route: 048
  2. MUCODYNE (CARBOCISTEINE) [Suspect]
     Route: 048
  3. ULCERLMIN [Suspect]
     Route: 048
  4. MYSLEE (ZOLPIDEM TARTRATE) [Concomitant]

REACTIONS (1)
  - Colitis ischaemic [None]
